FAERS Safety Report 10645611 (Version 6)
Quarter: 2015Q3

REPORT INFORMATION
  Report Type: Report from Study
  Country: US (occurrence: US)
  Receive Date: 20141211
  Receipt Date: 20150715
  Transmission Date: 20151125
  Serious: Yes (Hospitalization, Other)
  Sender: FDA-Public Use
  Company Number: US-JNJFOC-20141204656

PATIENT
  Age: 77 Year
  Sex: Female
  Weight: 59.88 kg

DRUGS (4)
  1. PREDNISONE. [Concomitant]
     Active Substance: PREDNISONE
     Indication: NEURALGIA
     Route: 065
  2. REMICADE [Suspect]
     Active Substance: INFLIXIMAB
     Indication: RHEUMATOID ARTHRITIS
     Dosage: TOTAL DOSE AS 400 MG
     Route: 042
     Dates: start: 2001
  3. REMICADE [Suspect]
     Active Substance: INFLIXIMAB
     Indication: RHEUMATOID ARTHRITIS
     Dosage: JUL OR AUG-2014
     Route: 042
     Dates: start: 2014, end: 20140806
  4. NEURONTIN [Concomitant]
     Active Substance: GABAPENTIN
     Indication: NEURALGIA
     Route: 065

REACTIONS (4)
  - Bladder cancer [Not Recovered/Not Resolved]
  - Hepatic enzyme increased [Unknown]
  - Renal cancer [Not Recovered/Not Resolved]
  - Malignant urinary tract neoplasm [Unknown]

NARRATIVE: CASE EVENT DATE: 2014
